FAERS Safety Report 7373606-8 (Version None)
Quarter: 2011Q1

REPORT INFORMATION
  Report Type: 
  Country: None (occurrence: None)
  Receive Date: 20110325
  Receipt Date: 20110303
  Transmission Date: 20110831
  Serious: Yes (Other)
  Sender: FDA-Public Use
  Company Number: US-BAYER-2011-009259

PATIENT
  Sex: Female

DRUGS (10)
  1. RENAGEL [Concomitant]
     Dosage: 2 TABLETS
  2. LISINOPRIL [Concomitant]
     Dosage: 10 MG, BEDTIME
  3. NORVASC [Concomitant]
     Dosage: 10 MG, ONCE
  4. UNCODEABLE ^UNCLASSIFIABLE^ [Concomitant]
     Dosage: DAILY
  5. TRASYLOL [Suspect]
     Indication: PRODUCT USED FOR UNKNOWN INDICATION
     Dosage: UNK
     Route: 042
     Dates: start: 20040107
  6. AMIODARONE HCL [Concomitant]
     Dosage: 200 MG, QD
  7. OMEPRAZOLE [Concomitant]
     Dosage: 20 MG, QD
  8. DILANTIN [Concomitant]
  9. PLAVIX [Concomitant]
     Dosage: 75 MG, QD
  10. ALPRAZOLAM [Concomitant]
     Dosage: 0.5 MG, UNK

REACTIONS (10)
  - RENAL FAILURE [None]
  - STRESS [None]
  - INJURY [None]
  - PAIN [None]
  - RENAL IMPAIRMENT [None]
  - EMOTIONAL DISTRESS [None]
  - UNEVALUABLE EVENT [None]
  - FEAR [None]
  - RENAL INJURY [None]
  - ANXIETY [None]
